FAERS Safety Report 13346792 (Version 1)
Quarter: 2017Q1

REPORT INFORMATION
  Report Type: Spontaneous
  Country: US (occurrence: US)
  Receive Date: 20170317
  Receipt Date: 20170317
  Transmission Date: 20170428
  Serious: No
  Sender: FDA-Public Use
  Company Number: US-PERRIGO-16US014383

PATIENT
  Age: 48 Year
  Sex: Female
  Weight: 72.56 kg

DRUGS (2)
  1. NICOTINE POLACRILEX [Suspect]
     Active Substance: NICOTINE
     Indication: SMOKING CESSATION THERAPY
     Dosage: 2 MG, 30 TO 35 TIMES DAILY
     Route: 002
     Dates: start: 2008, end: 2014
  2. NICOTINE POLACRILEX [Suspect]
     Active Substance: NICOTINE
     Dosage: 2 MG, 20 TIMES DAILY
     Route: 002
     Dates: start: 2014

REACTIONS (3)
  - Incorrect drug administration duration [Unknown]
  - Nicotine dependence [Not Recovered/Not Resolved]
  - Overdose [Recovered/Resolved]

NARRATIVE: CASE EVENT DATE: 2008
